FAERS Safety Report 7581348-9 (Version None)
Quarter: 2011Q2

REPORT INFORMATION
  Report Type: 
  Country: None (occurrence: None)
  Receive Date: 20110629
  Receipt Date: 20110613
  Transmission Date: 20111010
  Serious: No
  Sender: FDA-Public Use
  Company Number: US-B.I. PHARMACEUTICALS,INC./RIDGEFIELD-2011-BP-13258BP

PATIENT
  Age: 86 Year
  Sex: Female
  Weight: 81.65 kg

DRUGS (1)
  1. PRADAXA [Suspect]
     Indication: ATRIAL FIBRILLATION
     Dosage: 300 MG
     Route: 048
     Dates: start: 20110322, end: 20110501

REACTIONS (3)
  - DYSPHAGIA [None]
  - OEDEMA PERIPHERAL [None]
  - RASH [None]
